FAERS Safety Report 23046910 (Version 1)
Quarter: 2023Q4

REPORT INFORMATION
  Report Type: Spontaneous
  Country: CN (occurrence: CN)
  Receive Date: 20231009
  Receipt Date: 20231009
  Transmission Date: 20240109
  Serious: Yes (Other)
  Sender: FDA-Public Use
  Company Number: CN-WOODWARD-2023-CN-000536

PATIENT
  Age: 32 Year
  Sex: Female

DRUGS (4)
  1. RABEPRAZOLE SODIUM [Suspect]
     Active Substance: RABEPRAZOLE SODIUM
     Indication: Helicobacter infection
     Dosage: 20 MG, 1 D
     Route: 048
     Dates: start: 20230908, end: 20230914
  2. BISMUTH SUBCITRATE [Suspect]
     Active Substance: BISMUTH SUBCITRATE
     Dosage: 480 MG, 1 D
     Route: 048
     Dates: start: 20230908, end: 20230916
  3. METRONIDAZOLE [Suspect]
     Active Substance: METRONIDAZOLE
     Dosage: 1.2 GM, 1 D
     Route: 048
     Dates: start: 20230908, end: 20230915
  4. AMOXICILLIN [Suspect]
     Active Substance: AMOXICILLIN
     Dosage: 2 GM, 1 D
     Route: 048
     Dates: start: 20230908, end: 20230916

REACTIONS (2)
  - Drug eruption [Unknown]
  - Dermatitis allergic [Recovering/Resolving]

NARRATIVE: CASE EVENT DATE: 20230910
